FAERS Safety Report 13567235 (Version 2)
Quarter: 2018Q2

REPORT INFORMATION
  Report Type: Spontaneous
  Country: US (occurrence: US)
  Receive Date: 20170522
  Receipt Date: 20180521
  Transmission Date: 20180711
  Serious: No
  Sender: FDA-Public Use
  Company Number: US-TEVA-757537ACC

PATIENT
  Sex: Male

DRUGS (20)
  1. BENICAR [Concomitant]
     Active Substance: OLMESARTAN MEDOXOMIL
     Dosage: 40 MILLIGRAM DAILY;
     Route: 065
  2. MEXILETINE [Concomitant]
     Active Substance: MEXILETINE
     Dosage: 300 MILLIGRAM DAILY; EVERY MNG
  3. DIHYDROERGOTAMINE [Concomitant]
     Active Substance: DIHYDROERGOTAMINE
     Indication: HEADACHE
     Dosage: PRN
     Route: 030
  4. PANTOPRAZOLE [Concomitant]
     Active Substance: PANTOPRAZOLE
     Dosage: 80 MILLIGRAM DAILY;
  5. CLARITON 2 [Concomitant]
  6. IMIITREX [Concomitant]
     Indication: HEADACHE
     Dosage: PRN
     Route: 048
  7. COGENTIN [Concomitant]
     Active Substance: BENZTROPINE MESYLATE
  8. XANAX [Concomitant]
     Active Substance: ALPRAZOLAM
     Indication: SLEEP DISORDER
     Dosage: PRN
  9. XANAX [Concomitant]
     Active Substance: ALPRAZOLAM
     Indication: ANXIETY
  10. MEXILETINE [Suspect]
     Active Substance: MEXILETINE
     Indication: MIGRAINE
  11. LIPITOR [Concomitant]
     Active Substance: ATORVASTATIN CALCIUM
     Route: 048
  12. TYLENOL [Concomitant]
     Active Substance: ACETAMINOPHEN
     Dosage: PRN
  13. TORADOL [Concomitant]
     Active Substance: KETOROLAC TROMETHAMINE
     Indication: HEADACHE
     Route: 030
  14. MEXILETINE [Suspect]
     Active Substance: MEXILETINE
     Dosage: 750 MILLIGRAM DAILY;
     Route: 065
     Dates: start: 201612, end: 20170401
  15. CALCITRIOL. [Concomitant]
     Active Substance: CALCITRIOL
     Dosage: .5 MILLIGRAM DAILY;
     Route: 048
  16. OXYTOCIN. [Concomitant]
     Active Substance: OXYTOCIN
     Dosage: 150 IU/ML PRN 2 EACH NOSTRILS
  17. HALDOL [Concomitant]
     Active Substance: HALOPERIDOL
     Indication: HEADACHE
     Dosage: 2-4 MG PRN
  18. MEXILETINE [Suspect]
     Active Substance: MEXILETINE
     Indication: MIGRAINE PROPHYLAXIS
  19. IMIITREX [Concomitant]
     Dosage: PRN
     Route: 058
  20. IBUPROFEN. [Concomitant]
     Active Substance: IBUPROFEN
     Indication: HEADACHE
     Dosage: UPTO TID PRN
     Route: 048

REACTIONS (7)
  - Decreased appetite [Recovered/Resolved]
  - Abdominal discomfort [Recovered/Resolved]
  - Weight decreased [Recovered/Resolved]
  - Pyrexia [Recovered/Resolved]
  - Drug ineffective [Unknown]
  - Blood count abnormal [Unknown]
  - Chills [Unknown]
